FAERS Safety Report 16138782 (Version 6)
Quarter: 2019Q3

REPORT INFORMATION
  Report Type: Report from Study
  Country: CO (occurrence: CO)
  Receive Date: 20190330
  Receipt Date: 20190711
  Transmission Date: 20191004
  Serious: Yes (Death, Other)
  Sender: FDA-Public Use
  Company Number: PHHY2019CO035020

PATIENT
  Sex: Female
  Weight: 66 kg

DRUGS (2)
  1. KISQALI [Suspect]
     Active Substance: RIBOCICLIB
     Indication: BREAST CANCER METASTATIC
     Dosage: 600 MG, QD
     Route: 048
     Dates: start: 20190204, end: 20190330
  2. FEMARA [Suspect]
     Active Substance: LETROZOLE
     Indication: BREAST CANCER METASTATIC
     Dosage: 2.5 MG, QD
     Route: 048
     Dates: start: 20190104, end: 20190330

REACTIONS (15)
  - General physical health deterioration [Fatal]
  - Muscle contracture [Not Recovered/Not Resolved]
  - Pain in extremity [Unknown]
  - Poisoning [Unknown]
  - Decreased appetite [Unknown]
  - Stomatitis [Not Recovered/Not Resolved]
  - Decreased immune responsiveness [Unknown]
  - Aphasia [Unknown]
  - Malnutrition [Unknown]
  - Gait disturbance [Unknown]
  - Vomiting [Unknown]
  - Oral discomfort [Unknown]
  - Dysphonia [Not Recovered/Not Resolved]
  - Abdominal pain upper [Unknown]
  - Diarrhoea [Not Recovered/Not Resolved]
